FAERS Safety Report 5768009-3 (Version None)
Quarter: 2008Q2

REPORT INFORMATION
  Report Type: 
  Country: None (occurrence: None)
  Receive Date: 20080601
  Receipt Date: 20080114
  Transmission Date: 20081010
  Serious: Yes (Hospitalization)
  Sender: FDA-Public Use
  Company Number: US200801003265

PATIENT
  Age: 74 Year
  Sex: Male
  Weight: 96 kg

DRUGS (1)
  1. BYETTA [Suspect]
     Indication: DIABETES MELLITUS
     Dates: start: 20061120, end: 20061217

REACTIONS (1)
  - PANCREATITIS ACUTE [None]
